FAERS Safety Report 20166269 (Version 1)
Quarter: 2021Q4

REPORT INFORMATION
  Report Type: Spontaneous
  Country: US (occurrence: US)
  Receive Date: 20211209
  Receipt Date: 20211209
  Transmission Date: 20220304
  Serious: No
  Sender: FDA-Public Use
  Company Number: US-SA-SAC20211207000976

PATIENT
  Age: 37 Year
  Sex: Female

DRUGS (1)
  1. AUBAGIO [Suspect]
     Active Substance: TERIFLUNOMIDE

REACTIONS (5)
  - Swelling [Unknown]
  - Retching [Unknown]
  - Gastroenteritis viral [Unknown]
  - Nausea [Unknown]
  - Headache [Unknown]
